FAERS Safety Report 7706299-8 (Version None)
Quarter: 2011Q3

REPORT INFORMATION
  Report Type: 
  Country: None (occurrence: None)
  Receive Date: 20110824
  Receipt Date: 20110822
  Transmission Date: 20111222
  Serious: Yes (Other)
  Sender: FDA-Public Use
  Company Number: PFIZER INC-2007047548

PATIENT
  Age: 28 Year
  Sex: Female

DRUGS (3)
  1. HYDROCORTISONE SODIUM SUCCINATE [Suspect]
     Dosage: 24 MG IN TOTAL OF 8 SESSIONS
     Route: 037
  2. CYTARABINE [Suspect]
     Route: 037
  3. METHOTREXATE [Suspect]
     Route: 037

REACTIONS (5)
  - MYELOPATHY [None]
  - MUSCULAR WEAKNESS [None]
  - DYSURIA [None]
  - PARAESTHESIA [None]
  - SENSORIMOTOR DISORDER [None]
